FAERS Safety Report 16379045 (Version 7)
Quarter: 2021Q2

REPORT INFORMATION
  Report Type: Report from Study
  Country: PL (occurrence: PL)
  Receive Date: 20190531
  Receipt Date: 20210528
  Transmission Date: 20210716
  Serious: Yes (Death)
  Sender: FDA-Public Use
  Company Number: PL-PFIZER INC-2019231652

PATIENT
  Age: 81 Year
  Sex: Female
  Weight: 64 kg

DRUGS (7)
  1. AVELUMAB [Suspect]
     Active Substance: AVELUMAB
     Indication: BLADDER CANCER
     Dosage: 800 MG, CYCLIC (EVERY 2 WEEKS)
     Route: 042
     Dates: start: 20190325
  2. ROWATINEX [Concomitant]
     Active Substance: HERBALS
     Indication: NEPHROLITHIASIS
     Dosage: UNK UNK, 1X/DAY; MOST RECENT DOSE: COMPLEX DRUG
     Route: 048
     Dates: start: 1964
  3. AXITINIB [Suspect]
     Active Substance: AXITINIB
     Indication: BLADDER CANCER
     Dosage: 5 MG, 2X/DAY (EVERY DAY)
     Route: 048
     Dates: start: 20190325
  4. LACIPIL [Concomitant]
     Active Substance: LACIDIPINE
     Indication: HYPERTENSION
     Dosage: 4 MG, 1X/DAY
     Route: 048
     Dates: start: 2004
  5. DICLOBERL [Concomitant]
     Active Substance: DICLOFENAC SODIUM
     Indication: OSTEOARTHRITIS
     Dosage: 100 MG, AS NEEDED
     Route: 048
     Dates: start: 2004
  6. CLONAZEPAM. [Concomitant]
     Active Substance: CLONAZEPAM
     Indication: SLEEP DISORDER
     Dosage: 1 MG, 1X/DAY
     Route: 048
     Dates: start: 2014
  7. ROSUVASTATIN. [Concomitant]
     Active Substance: ROSUVASTATIN
     Indication: HYPERCHOLESTEROLAEMIA
     Dosage: 20 MG, 1X/DAY
     Route: 048
     Dates: start: 2004

REACTIONS (1)
  - Urinary bladder haemorrhage [Fatal]

NARRATIVE: CASE EVENT DATE: 20190521
